FAERS Safety Report 11982048 (Version 1)
Quarter: 2016Q1

REPORT INFORMATION
  Report Type: Spontaneous
  Country: US (occurrence: US)
  Receive Date: 20160201
  Receipt Date: 20160201
  Transmission Date: 20160526
  Serious: Yes (Other)
  Sender: FDA-Public Use
  Company Number: US-CIPLA LTD.-2016US00422

PATIENT

DRUGS (2)
  1. TOPOTECAN [Suspect]
     Active Substance: TOPOTECAN\TOPOTECAN HYDROCHLORIDE
     Indication: RETINOBLASTOMA
     Dosage: AT 1-MONTH (0.3 MG/20 ML)
     Route: 065
  2. MELPHALAN [Suspect]
     Active Substance: MELPHALAN
     Indication: RETINOBLASTOMA
     Dosage: AT 1-MONTHS, 5 MG/20 ML
     Route: 065

REACTIONS (4)
  - Scleritis [Unknown]
  - Retinal ischaemia [Unknown]
  - Enophthalmos [Unknown]
  - Iris atrophy [Unknown]
